FAERS Safety Report 7171117-6 (Version None)
Quarter: 2010Q4

REPORT INFORMATION
  Report Type: 
  Country: None (occurrence: None)
  Receive Date: 20101217
  Receipt Date: 20101207
  Transmission Date: 20110411
  Serious: Yes (Hospitalization)
  Sender: FDA-Public Use
  Company Number: PHHY2010JP83773

PATIENT
  Sex: Male

DRUGS (1)
  1. FASTIC [Suspect]
     Dosage: 180 MG PER DAY (90 MG X 2/ DAY)
     Route: 048
     Dates: start: 20090827, end: 20101108

REACTIONS (6)
  - CARDIAC ARREST [None]
  - CARDIOMEGALY [None]
  - CHEST PAIN [None]
  - PLEURAL EFFUSION [None]
  - RENAL DISORDER [None]
  - WEIGHT DECREASED [None]
